FAERS Safety Report 8560023-8 (Version None)
Quarter: 2012Q3

REPORT INFORMATION
  Report Type: 
  Country: None (occurrence: None)
  Receive Date: 20120802
  Receipt Date: 20120730
  Transmission Date: 20120928
  Serious: Yes (Hospitalization, Disabling)
  Sender: FDA-Public Use
  Company Number: US-PFIZER INC-2012077580

PATIENT
  Sex: Female
  Weight: 68.03 kg

DRUGS (5)
  1. CELEBREX [Suspect]
     Indication: JOINT SWELLING
  2. ATENOLOL [Concomitant]
     Indication: HYPERTENSION
     Dosage: 25 MG, 2X/DAY
  3. CELEBREX [Suspect]
     Indication: ARTHRALGIA
     Dosage: 200 MG, DAILY
     Route: 048
     Dates: start: 20120309, end: 20120312
  4. CELEBREX [Suspect]
     Indication: MUSCULOSKELETAL PAIN
  5. HYDROCHLOROTHIAZIDE [Concomitant]
     Indication: HYPERTENSION
     Dosage: 25 MG, DAILY

REACTIONS (4)
  - CEREBROVASCULAR ACCIDENT [None]
  - AMNESIA [None]
  - DYSPHONIA [None]
  - HEADACHE [None]
